FAERS Safety Report 25097422 (Version 3)
Quarter: 2025Q2

REPORT INFORMATION
  Report Type: Spontaneous
  Country: DE (occurrence: DE)
  Receive Date: 20250320
  Receipt Date: 20250406
  Transmission Date: 20250717
  Serious: Yes (Other)
  Sender: ORGANON
  Company Number: DE-ORGANON-O2503DEU001816

PATIENT
  Age: 37 Year
  Sex: Female

DRUGS (1)
  1. ETONOGESTREL [Suspect]
     Active Substance: ETONOGESTREL
     Indication: Contraception
     Route: 059
     Dates: start: 20241203

REACTIONS (1)
  - Psoriatic arthropathy [Not Recovered/Not Resolved]
